FAERS Safety Report 13993324 (Version 1)
Quarter: 2017Q3

REPORT INFORMATION
  Report Type: Report from Study
  Country: US (occurrence: US)
  Receive Date: 20170920
  Receipt Date: 20170920
  Transmission Date: 20171128
  Serious: Yes (Other)
  Sender: FDA-Public Use
  Company Number: PHHY2017US136403

PATIENT
  Sex: Female

DRUGS (1)
  1. SYSTANE (HYPROMELLOSE 2910 (4000 MPA.S)) [Suspect]
     Active Substance: HYPROMELLOSE 2910 (4000 MPA.S)
     Indication: PRODUCT USED FOR UNKNOWN INDICATION
     Route: 065

REACTIONS (7)
  - Eye discharge [Unknown]
  - Visual impairment [Unknown]
  - Exposure to radiation [Unknown]
  - Deafness unilateral [Unknown]
  - Nasal dryness [Unknown]
  - Nasal sinus cancer [Unknown]
  - Eye swelling [Unknown]
